FAERS Safety Report 7363006-9 (Version None)
Quarter: 2011Q1

REPORT INFORMATION
  Report Type: 
  Country: None (occurrence: None)
  Receive Date: 20110321
  Receipt Date: 20110316
  Transmission Date: 20110831
  Serious: Yes (Other)
  Sender: FDA-Public Use
  Company Number: US-PFIZER INC-2011058353

PATIENT
  Sex: Male

DRUGS (5)
  1. LIPITOR [Concomitant]
     Dosage: UNK
  2. ZETIA [Concomitant]
     Dosage: UNK
  3. METFORMIN HYDROCHLORIDE/SITAGLIPTIN [Concomitant]
     Indication: TYPE 2 DIABETES MELLITUS
     Dosage: UNK
  4. VIAGRA [Suspect]
     Dosage: 50 MG, AS NEEDED
     Route: 048
  5. CARDURA [Concomitant]
     Dosage: UNK

REACTIONS (4)
  - DEPRESSION [None]
  - IRRITABILITY [None]
  - DRUG EFFECT DECREASED [None]
  - FEELING ABNORMAL [None]
